FAERS Safety Report 20621256 (Version 1)
Quarter: 2022Q1

REPORT INFORMATION
  Report Type: Spontaneous
  Country: US (occurrence: US)
  Receive Date: 20220322
  Receipt Date: 20220322
  Transmission Date: 20220423
  Serious: Yes (Hospitalization, Other)
  Sender: FDA-Public Use
  Company Number: US-SAOL THERAPEUTICS-2022SAO00074

PATIENT
  Age: 55 Year
  Sex: Female

DRUGS (3)
  1. LIORESAL [Suspect]
     Active Substance: BACLOFEN
     Dosage: 570 ?G, \DAY
     Route: 037
     Dates: end: 202203
  2. LIORESAL [Suspect]
     Active Substance: BACLOFEN
     Dosage: 520 ?G, \DAY
     Route: 037
     Dates: start: 202203
  3. BACLOFEN [Suspect]
     Active Substance: BACLOFEN
     Indication: Drug withdrawal syndrome
     Dosage: 20 MG, 3X/DAY
     Route: 048
     Dates: start: 202203

REACTIONS (7)
  - Atrial fibrillation [Recovered/Resolved]
  - Confusional state [Recovered/Resolved]
  - Somnolence [Recovered/Resolved]
  - Depressed level of consciousness [Recovered/Resolved]
  - Drug withdrawal syndrome [Recovered/Resolved]
  - Overdose [Recovered/Resolved]
  - Headache [Recovered/Resolved]

NARRATIVE: CASE EVENT DATE: 20220301
